FAERS Safety Report 25832837 (Version 1)
Quarter: 2025Q3

REPORT INFORMATION
  Report Type: Spontaneous
  Country: US (occurrence: US)
  Receive Date: 20250922
  Receipt Date: 20250922
  Transmission Date: 20251020
  Serious: No
  Sender: JOHNSON AND JOHNSON
  Company Number: US-JNJFOC-20250921159

PATIENT
  Sex: Male

DRUGS (1)
  1. CARVYKTI [Suspect]
     Active Substance: CILTACABTAGENE AUTOLEUCEL
     Indication: Plasma cell myeloma
     Dates: start: 202412, end: 202412

REACTIONS (5)
  - Flat affect [Unknown]
  - Infusion related reaction [Unknown]
  - Chest discomfort [Unknown]
  - Abdominal discomfort [Unknown]
  - Injection site pain [Unknown]
